FAERS Safety Report 7419385-7 (Version None)
Quarter: 2011Q2

REPORT INFORMATION
  Report Type: 
  Country: None (occurrence: None)
  Receive Date: 20110415
  Receipt Date: 20110330
  Transmission Date: 20111010
  Serious: Yes (Hospitalization)
  Sender: FDA-Public Use
  Company Number: DE-ACTELION-A-US2011-47433

PATIENT

DRUGS (1)
  1. VENTAVIS [Suspect]
     Dosage: 2 DOSES
     Route: 055
     Dates: start: 20110317

REACTIONS (3)
  - DYSPNOEA [None]
  - CONDITION AGGRAVATED [None]
  - EMPHYSEMA [None]
